FAERS Safety Report 25056226 (Version 2)
Quarter: 2025Q1

REPORT INFORMATION
  Report Type: Report from Study
  Country: CO (occurrence: CO)
  Receive Date: 20250309
  Receipt Date: 20250314
  Transmission Date: 20250408
  Serious: Yes (Hospitalization)
  Sender: NOVO NORDISK
  Company Number: CO-NOVOPROD-1379387

PATIENT
  Age: 72 Year
  Sex: Female
  Weight: 82 kg

DRUGS (3)
  1. ACETAMINOPHEN\HYDROCODONE [Concomitant]
     Active Substance: ACETAMINOPHEN\HYDROCODONE
     Indication: Pain
     Route: 048
  2. SAXENDA [Suspect]
     Active Substance: LIRAGLUTIDE
     Dosage: 0.6 MG, QD
     Route: 058
  3. SAXENDA [Suspect]
     Active Substance: LIRAGLUTIDE
     Indication: Obesity
     Dosage: 1.2 MG, QD
     Route: 058
     Dates: start: 20250130

REACTIONS (1)
  - Chronic gastritis [Recovered/Resolved]

NARRATIVE: CASE EVENT DATE: 20250201
